FAERS Safety Report 5811132-5 (Version None)
Quarter: 2008Q3

REPORT INFORMATION
  Report Type: 
  Country: None (occurrence: None)
  Receive Date: 20080716
  Receipt Date: 20080707
  Transmission Date: 20090109
  Serious: Yes (Hospitalization)
  Sender: FDA-Public Use
  Company Number: PHNU2008DE01291

PATIENT
  Sex: Female
  Weight: 55 kg

DRUGS (1)
  1. ZOLEDRONIC ACID [Suspect]
     Indication: OSTEOPOROSIS
     Dosage: 5 MG, ONCE/SINGLE
     Route: 042
     Dates: start: 20080306, end: 20080306

REACTIONS (6)
  - CHEST DISCOMFORT [None]
  - CHILLS [None]
  - FEELING HOT [None]
  - INFLUENZA LIKE ILLNESS [None]
  - PYREXIA [None]
  - SENSE OF OPPRESSION [None]
